FAERS Safety Report 6582887-X (Version None)
Quarter: 2010Q1

REPORT INFORMATION
  Report Type: 
  Country: None (occurrence: None)
  Receive Date: 20100216
  Receipt Date: 20100205
  Transmission Date: 20100710
  Serious: Yes (Hospitalization)
  Sender: FDA-Public Use
  Company Number: US-ELI_LILLY_AND_COMPANY-US201002001649

PATIENT
  Age: 76 Year
  Sex: Male

DRUGS (2)
  1. HUMALOG [Suspect]
     Indication: DIABETES MELLITUS
     Dosage: UNK, DAILY (1/D)
     Dates: start: 20000101
  2. LANTUS [Concomitant]

REACTIONS (5)
  - ASTHENIA [None]
  - EAR INFECTION [None]
  - MACULAR DEGENERATION [None]
  - OSTEOMYELITIS [None]
  - VISUAL ACUITY REDUCED [None]
